FAERS Safety Report 9019775 (Version 1)
Quarter: 2013Q1

REPORT INFORMATION
  Report Type: Spontaneous
  Country: US (occurrence: US)
  Receive Date: 20130118
  Receipt Date: 20130118
  Transmission Date: 20140127
  Serious: No
  Sender: FDA-Public Use
  Company Number: US-B.I. PHARMACEUTICALS,INC./RIDGEFIELD-2013-BI-01011BP

PATIENT
  Age: 68 None
  Sex: Female
  Weight: 82 kg

DRUGS (2)
  1. TRADJENTA [Suspect]
     Indication: DIABETES MELLITUS
     Dosage: 5 MG
     Route: 048
     Dates: start: 201208, end: 201209
  2. TRADJENTA [Suspect]
     Dosage: 5 MG
     Route: 048
     Dates: start: 201212, end: 201301

REACTIONS (3)
  - Back pain [Recovered/Resolved]
  - Back pain [Recovered/Resolved]
  - Meniscus injury [Not Recovered/Not Resolved]
